FAERS Safety Report 23671118 (Version 1)
Quarter: 2024Q1

REPORT INFORMATION
  Report Type: Spontaneous
  Country: LU (occurrence: None)
  Receive Date: 20240326
  Receipt Date: 20240326
  Transmission Date: 20240409
  Serious: Yes (Life-Threatening, Hospitalization)
  Sender: FDA-Public Use
  Company Number: 2024A069494

PATIENT
  Age: 69 Year
  Sex: Male
  Weight: 95 kg

DRUGS (11)
  1. DAPAGLIFLOZIN [Suspect]
     Active Substance: DAPAGLIFLOZIN
     Indication: Type 2 diabetes mellitus
     Route: 048
     Dates: end: 20240228
  2. MORPHINE [Suspect]
     Active Substance: MORPHINE
     Indication: Pain
     Dates: start: 20240227, end: 20240228
  3. JANUMET [Suspect]
     Active Substance: METFORMIN HYDROCHLORIDE\SITAGLIPTIN PHOSPHATE
     Indication: Type 2 diabetes mellitus
     Dosage: 50 MG/850 MG
     Dates: end: 20240228
  4. OZEMPIC [Concomitant]
     Active Substance: SEMAGLUTIDE
     Indication: Type 2 diabetes mellitus
     Dosage: 1.0MG UNKNOWN
  5. CRESTOR [Concomitant]
     Active Substance: ROSUVASTATIN CALCIUM
     Indication: Cardiovascular event prophylaxis
     Dosage: 20 MG 0-0-1
  6. BISOPROLOL FUMARATE [Concomitant]
     Active Substance: BISOPROLOL FUMARATE
     Indication: Supraventricular extrasystoles
     Dosage: 2.5 MG 1/2-0-1/2
  7. ASPIRIN [Concomitant]
     Active Substance: ASPIRIN
     Indication: Cardiovascular event prophylaxis
     Dosage: 100 MG 1-0-0
  8. FOLIC ACID [Concomitant]
     Active Substance: FOLIC ACID
     Indication: Vitamin supplementation
  9. LYRICA [Concomitant]
     Active Substance: PREGABALIN
     Indication: Polyneuropathy
     Dosage: 75 MG : 2-0-2
  10. DAFALGAN [Concomitant]
     Active Substance: ACETAMINOPHEN
     Indication: Pain
  11. CHOLECALCIFEROL [Concomitant]
     Active Substance: CHOLECALCIFEROL
     Indication: Vitamin supplementation

REACTIONS (3)
  - Diabetic ketoacidosis [Recovered/Resolved]
  - Overdose [Recovered/Resolved]
  - Coma [Recovered/Resolved]

NARRATIVE: CASE EVENT DATE: 20240228
